FAERS Safety Report 9485125 (Version 1)
Quarter: 2013Q3

REPORT INFORMATION
  Report Type: Spontaneous
  Country: US (occurrence: US)
  Receive Date: 20130828
  Receipt Date: 20130828
  Transmission Date: 20140515
  Serious: No
  Sender: FDA-Public Use
  Company Number: US-ABBOTT-13P-163-1104058-00

PATIENT
  Age: 62 Year
  Sex: Male
  Weight: 93.07 kg

DRUGS (3)
  1. ANDROGEL STICK PACK 2.5G [Suspect]
     Indication: BLOOD TESTOSTERONE DECREASED
  2. AMLODIPINE [Concomitant]
     Indication: HYPERTENSION
  3. ASPIRIN [Concomitant]
     Indication: CARDIAC DISORDER

REACTIONS (2)
  - Breast enlargement [Not Recovered/Not Resolved]
  - Breast pain [Not Recovered/Not Resolved]
